FAERS Safety Report 17517700 (Version 1)
Quarter: 2020Q1

REPORT INFORMATION
  Report Type: Spontaneous
  Country: US (occurrence: US)
  Receive Date: 20200309
  Receipt Date: 20200309
  Transmission Date: 20200409
  Serious: No
  Sender: FDA-Public Use
  Company Number: None

PATIENT
  Age: 61 Year
  Sex: Female
  Weight: 56.25 kg

DRUGS (3)
  1. BOTOX [Suspect]
     Active Substance: ONABOTULINUMTOXINA
     Indication: MIGRAINE
     Dosage: ?          QUANTITY:31 INJECTION(S);OTHER FREQUENCY:EVERY 3 MONTHS;OTHER ROUTE:INJECTED AT EMORY- HEAD, NECK, SHOULDERS?
     Dates: start: 20191209
  2. MULTIVITAMIN [Concomitant]
     Active Substance: VITAMINS
  3. XIIDRA [Concomitant]
     Active Substance: LIFITEGRAST

REACTIONS (3)
  - Musculoskeletal pain [None]
  - Neck pain [None]
  - Back pain [None]

NARRATIVE: CASE EVENT DATE: 20191223
